FAERS Safety Report 7282565-8 (Version None)
Quarter: 2011Q1

REPORT INFORMATION
  Report Type: 
  Country: None (occurrence: None)
  Receive Date: 20110209
  Receipt Date: 20110203
  Transmission Date: 20110831
  Serious: Yes (Other)
  Sender: FDA-Public Use
  Company Number: US-PFIZER INC-2010149609

PATIENT
  Sex: Female

DRUGS (7)
  1. ALBUTEROL [Concomitant]
     Indication: ASTHMA
     Dosage: UNK
  2. VENTOLIN [Concomitant]
     Indication: ASTHMA
     Dosage: UNK
  3. CHANTIX [Suspect]
     Indication: SMOKING CESSATION THERAPY
     Dosage: UNK
     Dates: start: 20081231, end: 20091018
  4. PREDNISONE [Concomitant]
     Indication: ASTHMA
     Dosage: UNK
  5. SPIRIVA [Concomitant]
     Indication: ASTHMA
     Dosage: UNK
  6. TYLENOL-500 [Concomitant]
     Indication: BONE PAIN
     Dosage: UNK
     Dates: start: 20060101
  7. THEOPHYLLINE [Concomitant]
     Indication: ASTHMA
     Dosage: UNK

REACTIONS (5)
  - SUICIDAL IDEATION [None]
  - DEPRESSION [None]
  - AGGRESSION [None]
  - ANXIETY [None]
  - HOSTILITY [None]
